FAERS Safety Report 10086658 (Version 1)
Quarter: 2014Q2

REPORT INFORMATION
  Report Type: Not Available
  Country: GB (occurrence: GB)
  Receive Date: 20140418
  Receipt Date: 20140418
  Transmission Date: 20141212
  Serious: Yes (Life-Threatening, Hospitalization, Other)
  Sender: FDA-Public Use
  Company Number: GB-PURDUE-USA-2014-0112865

PATIENT
  Age: 52 Year
  Sex: Female
  Weight: 68 kg

DRUGS (5)
  1. TRAMADOL (SIMILAR TO NDA 21-745) [Suspect]
     Indication: PRODUCT USED FOR UNKNOWN INDICATION
     Dosage: UNK, UNK
     Route: 065
  2. CHAMPIX [Suspect]
     Indication: PRODUCT USED FOR UNKNOWN INDICATION
     Dosage: 1 MG, BID
     Route: 048
     Dates: start: 20071005
  3. AMITRIPTYLINE [Concomitant]
     Indication: BACK PAIN
     Dosage: 50 MG, UNK
     Route: 048
  4. BECLOMETHASONE                     /00212602/ [Concomitant]
     Indication: ASTHMA
     Dosage: 200 MG, UNK
     Route: 055
  5. SALBUTAMOL [Concomitant]
     Indication: ASTHMA
     Dosage: 100 MG, UNK
     Route: 055

REACTIONS (2)
  - Suicide attempt [Recovered/Resolved]
  - Overdose [Recovered/Resolved]
